FAERS Safety Report 4686643-9 (Version None)
Quarter: 2005Q2

REPORT INFORMATION
  Report Type: 
  Country: None (occurrence: None)
  Receive Date: 20050608
  Receipt Date: 20050530
  Transmission Date: 20051028
  Serious: Yes (Hospitalization)
  Sender: FDA-Public Use
  Company Number: 2005-04-1871

PATIENT
  Age: 43 Year
  Sex: Female

DRUGS (8)
  1. INTRON A [Suspect]
     Indication: CHRONIC MYELOID LEUKAEMIA
     Dosage: 5 MU IV,QOD
     Route: 042
     Dates: start: 19930101, end: 20050401
  2. INTRON A [Suspect]
     Indication: CHRONIC MYELOID LEUKAEMIA
     Dosage: 5 MU SC QD
     Route: 058
  3. METOPROLOL [Concomitant]
  4. ENALAPRIL MALEATE [Concomitant]
  5. URAPIDIL [Concomitant]
  6. LEVOTHYROXINE SODIUM [Concomitant]
  7. CITALOPRAM [Concomitant]
  8. BROTIZOLAM [Concomitant]

REACTIONS (14)
  - ANTI-THYROID ANTIBODY POSITIVE [None]
  - ANTINEUTROPHIL CYTOPLASMIC ANTIBODY POSITIVE [None]
  - ANTINUCLEAR ANTIBODY POSITIVE [None]
  - HYPERTENSION [None]
  - LEFT VENTRICULAR FAILURE [None]
  - MITRAL VALVE INCOMPETENCE [None]
  - PERICARDIAL EFFUSION [None]
  - PLEURAL EFFUSION [None]
  - POLYARTERITIS NODOSA [None]
  - PULMONARY OEDEMA [None]
  - RENAL IMPAIRMENT [None]
  - RENAL NECROSIS [None]
  - RIGHT VENTRICULAR FAILURE [None]
  - VASCULITIS NECROTISING [None]
